FAERS Safety Report 9785141 (Version 3)
Quarter: 2014Q1

REPORT INFORMATION
  Report Type: Report from Study
  Country: BE (occurrence: BE)
  Receive Date: 20131227
  Receipt Date: 20140120
  Transmission Date: 20141002
  Serious: Yes (Hospitalization)
  Sender: FDA-Public Use
  Company Number: BE-ASTRAZENECA-2013SE93391

PATIENT
  Age: 24450 Day
  Sex: Male
  Weight: 75 kg

DRUGS (13)
  1. AZD6140 [Suspect]
     Indication: CORONARY ARTERY DISEASE
     Route: 048
     Dates: start: 20120305, end: 20130729
  2. AZD6140 [Suspect]
     Indication: CORONARY ARTERY DISEASE
     Route: 048
     Dates: start: 20130807, end: 20131217
  3. AZD6140 [Suspect]
     Indication: CORONARY ARTERY DISEASE
     Route: 048
     Dates: end: 20131218
  4. BETHAMETHASONE [Suspect]
     Indication: GOUT
     Dosage: 4 MG/ML
     Route: 030
     Dates: start: 20131210, end: 20131212
  5. DICLOFENAC [Suspect]
     Indication: GOUT
     Route: 048
     Dates: start: 20131210, end: 20131215
  6. MEDROL [Suspect]
     Indication: GOUT
     Route: 065
     Dates: start: 20131210, end: 20131218
  7. RAMIPRIL [Concomitant]
     Indication: HYPERTENSION
     Route: 048
     Dates: start: 20110913
  8. PANTOMED [Concomitant]
     Indication: GASTRITIS PROPHYLAXIS
     Route: 048
     Dates: start: 20131210
  9. LIPITOR [Concomitant]
     Indication: HYPERCHOLESTEROLAEMIA
     Route: 048
     Dates: start: 20110304
  10. PROGOR [Concomitant]
     Indication: ANGINA PECTORIS
     Route: 048
     Dates: start: 20120214
  11. PROGOR [Concomitant]
     Indication: HYPERTENSION
     Route: 048
     Dates: start: 20120214
  12. COMBODART [Concomitant]
     Indication: PROSTATISM
     Route: 048
     Dates: start: 20121015
  13. ASA [Concomitant]
     Route: 048

REACTIONS (1)
  - Diverticulitis intestinal haemorrhagic [Recovered/Resolved]
